FAERS Safety Report 17683984 (Version 1)
Quarter: 2020Q2

REPORT INFORMATION
  Report Type: Spontaneous
  Country: US (occurrence: US)
  Receive Date: 20200420
  Receipt Date: 20200420
  Transmission Date: 20200714
  Serious: Yes (Other)
  Sender: FDA-Public Use
  Company Number: US-ASTELLAS-2020US013847

PATIENT
  Age: 75 Year
  Sex: Female

DRUGS (2)
  1. SOLIFENACIN [Suspect]
     Active Substance: SOLIFENACIN
     Indication: PRODUCT USED FOR UNKNOWN INDICATION
     Route: 065
     Dates: end: 20200207
  2. SOLIFENACIN [Suspect]
     Active Substance: SOLIFENACIN
     Route: 065
     Dates: start: 202002, end: 202002

REACTIONS (5)
  - Near death experience [Not Recovered/Not Resolved]
  - Depression [Not Recovered/Not Resolved]
  - Dementia [Not Recovered/Not Resolved]
  - Treatment noncompliance [Unknown]
  - Feeling abnormal [Not Recovered/Not Resolved]
